FAERS Safety Report 9792672 (Version 2)
Quarter: 2014Q2

REPORT INFORMATION
  Report Type: Spontaneous
  Country: US (occurrence: US)
  Receive Date: 20140102
  Receipt Date: 20140402
  Transmission Date: 20141212
  Serious: No
  Sender: FDA-Public Use
  Company Number: US-SA-2013SA109353

PATIENT
  Age: 44 Year
  Sex: Female

DRUGS (6)
  1. AUBAGIO [Suspect]
     Indication: MULTIPLE SCLEROSIS
     Route: 048
     Dates: start: 20130327
  2. XANAX [Concomitant]
  3. CELEXA [Concomitant]
  4. WELLBUTRIN [Concomitant]
  5. VITAMIN D [Concomitant]
  6. IBUPROFEN [Concomitant]

REACTIONS (1)
  - Blood pressure increased [Unknown]
